FAERS Safety Report 7274675-6 (Version None)
Quarter: 2011Q1

REPORT INFORMATION
  Report Type: 
  Country: None (occurrence: None)
  Receive Date: 20110204
  Receipt Date: 20110127
  Transmission Date: 20110831
  Serious: Yes (Other)
  Sender: FDA-Public Use
  Company Number: JP-JNJFOC-20110107882

PATIENT
  Age: 32 Year
  Sex: Female

DRUGS (3)
  1. RISPERDAL [Suspect]
     Route: 048
  2. RISPERDAL [Suspect]
     Indication: SCHIZOPHRENIA
     Route: 048
  3. HALOPERIDOL [Suspect]
     Indication: ILL-DEFINED DISORDER
     Route: 041

REACTIONS (3)
  - DYSTONIA [None]
  - INCORRECT ROUTE OF DRUG ADMINISTRATION [None]
  - DRUG EXPOSURE DURING PREGNANCY [None]
